FAERS Safety Report 5716770-6 (Version None)
Quarter: 2008Q2

REPORT INFORMATION
  Report Type: 
  Country: None (occurrence: None)
  Receive Date: 20080424
  Receipt Date: 20070601
  Transmission Date: 20081010
  Serious: No
  Sender: FDA-Public Use
  Company Number: US-BAYER-200711679BWH

PATIENT
  Age: 80 Year
  Sex: Male

DRUGS (6)
  1. LEVITRA [Suspect]
     Indication: UNEVALUABLE EVENT
     Dosage: TOTAL DAILY DOSE: 10 MG  UNIT DOSE: 10 MG
     Route: 048
     Dates: start: 20070529
  2. SIMVASTATIN [Concomitant]
  3. LORAZEPAM [Concomitant]
  4. FOLIC ACID [Concomitant]
  5. WARFARIN SODIUM [Concomitant]
  6. PAROXETINE HCL [Concomitant]

REACTIONS (1)
  - SEXUAL DYSFUNCTION [None]
